FAERS Safety Report 6955765-1 (Version None)
Quarter: 2010Q3

REPORT INFORMATION
  Report Type: 
  Country: None (occurrence: None)
  Receive Date: 20100830
  Receipt Date: 20100727
  Transmission Date: 20110219
  Serious: Yes (Other)
  Sender: FDA-Public Use
  Company Number: US-AMGEN-QUU425143

PATIENT
  Sex: Female
  Weight: 94.9 kg

DRUGS (11)
  1. NPLATE [Suspect]
     Indication: IDIOPATHIC THROMBOCYTOPENIC PURPURA
     Route: 058
     Dates: start: 20100310, end: 20100616
  2. PROMACTA [Concomitant]
  3. ZOCOR [Concomitant]
  4. FUROSEMIDE [Concomitant]
  5. DESIPRAMINE HCL [Concomitant]
  6. CITALOPRAM [Concomitant]
  7. HYDROXYZINE [Concomitant]
  8. HYDROCODONE [Concomitant]
  9. STOOL SOFTENER [Concomitant]
  10. FISH OIL [Concomitant]
  11. ALPRAZOLAM [Concomitant]

REACTIONS (1)
  - DRUG INEFFECTIVE [None]
